FAERS Safety Report 15323866 (Version 1)
Quarter: 2018Q3

REPORT INFORMATION
  Report Type: Report from Study
  Country: CO (occurrence: CO)
  Receive Date: 20180828
  Receipt Date: 20180828
  Transmission Date: 20181010
  Serious: Yes (Other)
  Sender: FDA-Public Use
  Company Number: CO-UCBSA-2018037254

PATIENT
  Age: 49 Year
  Sex: Male
  Weight: 81 kg

DRUGS (4)
  1. PREGABALIN. [Concomitant]
     Active Substance: PREGABALIN
     Indication: FIBROMYALGIA
     Dosage: 75 MG, ONCE DAILY (QD)
     Route: 048
     Dates: start: 20180403
  2. LEFLUNOMIDE. [Concomitant]
     Active Substance: LEFLUNOMIDE
     Indication: FIBROMYALGIA
     Dosage: 10 MG, ONCE DAILY (QD)
     Route: 048
     Dates: start: 20180403
  3. CERTOLIZUMAB PEGOL [Suspect]
     Active Substance: CERTOLIZUMAB PEGOL
     Indication: RHEUMATOID ARTHRITIS
     Dosage: 400 MG, MONTHLY (QM)
     Route: 058
     Dates: start: 20130826, end: 20180422
  4. ACETAMINOPHEN AND CODEINE [Concomitant]
     Active Substance: ACETAMINOPHEN\CODEINE PHOSPHATE
     Indication: FIBROMYALGIA
     Dosage: 500/30 MG, 3X/DAY (TID)
     Route: 048
     Dates: start: 20180403

REACTIONS (6)
  - Bronchitis [Recovered/Resolved]
  - Arthralgia [Recovered/Resolved]
  - Malaise [Recovered/Resolved]
  - Pyrexia [Recovered/Resolved]
  - Joint swelling [Recovered/Resolved]
  - Cough [Recovered/Resolved]

NARRATIVE: CASE EVENT DATE: 20180403
